FAERS Safety Report 4840331-4 (Version None)
Quarter: 2005Q4

REPORT INFORMATION
  Report Type: 
  Country: None (occurrence: None)
  Receive Date: 20051031
  Receipt Date: 20050914
  Transmission Date: 20060501
  Serious: Yes (Other)
  Sender: FDA-Public Use
  Company Number: 200515897US

PATIENT
  Age: 40 Year
  Sex: Female
  Weight: 80 kg

DRUGS (14)
  1. KETEK [Suspect]
     Indication: SINUSITIS
     Dosage: BID PO
     Route: 048
     Dates: start: 20050623, end: 20050627
  2. MACROBID [Suspect]
     Indication: KIDNEY INFECTION
  3. PSEUDOEPHEDRINE HYDROCHLORIDE, FEXOFENADINE (ALLEGRA-D) [Concomitant]
  4. . [Concomitant]
  5. PRINIVIL [Concomitant]
  6. ETHINYLESTRADIOL, NORGESTIMATE (ORTHO TRI-CYCLEN) [Concomitant]
  7. . [Concomitant]
  8. ZOLOFT [Concomitant]
  9. ASPIRIN [Concomitant]
  10. FLUTICASONE PROPIONATE, SALMETEROL XINAFOATE (ADVAIR DISKUS) [Concomitant]
  11. . [Concomitant]
  12. NASACORT [Concomitant]
  13. ALBUTEROL [Concomitant]
  14. FOLIC ACID [Concomitant]

REACTIONS (11)
  - ABDOMINAL PAIN [None]
  - ALANINE AMINOTRANSFERASE INCREASED [None]
  - ASPARTATE AMINOTRANSFERASE INCREASED [None]
  - BLOOD ALKALINE PHOSPHATASE INCREASED [None]
  - BLOOD BILIRUBIN INCREASED [None]
  - CHILLS [None]
  - FATIGUE [None]
  - HEPATIC ENZYME INCREASED [None]
  - NAUSEA [None]
  - PYREXIA [None]
  - VOMITING [None]
